FAERS Safety Report 4621118-4 (Version None)
Quarter: 2005Q1

REPORT INFORMATION
  Report Type: 
  Country: None (occurrence: None)
  Receive Date: 20050325
  Receipt Date: 20050311
  Transmission Date: 20050727
  Serious: Yes (Other)
  Sender: FDA-Public Use
  Company Number: DSA_24884_2004

PATIENT
  Age: 71 Year
  Sex: Female

DRUGS (2)
  1. TEVETEN (EPROSARTAN MESYLATE WITH HYDROCHLOROTHIAZIDE) [Suspect]
     Indication: HYPERTENSION
     Dosage: 1 DF PO
     Route: 048
     Dates: start: 20040614, end: 20040716
  2. ALLOPURINOL [Suspect]
     Indication: HYPERURICAEMIA
     Dosage: 300 MG Q DAY PO
     Route: 048
     Dates: start: 20040714, end: 20040716

REACTIONS (6)
  - ARRHYTHMIA [None]
  - ASTHENIA [None]
  - FEAR [None]
  - HYPERVENTILATION [None]
  - NAUSEA [None]
  - TACHYCARDIA [None]
